FAERS Safety Report 6379173-X (Version None)
Quarter: 2009Q3

REPORT INFORMATION
  Report Type: 
  Country: None (occurrence: None)
  Receive Date: 20090923
  Receipt Date: 20090923
  Transmission Date: 20100115
  Serious: Yes (Other)
  Sender: FDA-Public Use
  Company Number: None

PATIENT
  Age: 28 Year
  Sex: Female
  Weight: 61.2356 kg

DRUGS (4)
  1. METFORMIN HCL [Suspect]
     Indication: INFERTILITY
     Dosage: 1500MG DAILY PO
     Route: 048
     Dates: start: 20060701, end: 20070601
  2. METFORMIN HCL [Suspect]
     Indication: POLYCYSTIC OVARIES
     Dosage: 1500MG DAILY PO
     Route: 048
     Dates: start: 20060701, end: 20070601
  3. METFORMIN HCL [Suspect]
     Indication: INFERTILITY
     Dosage: 1500MG DAILY PO
     Route: 048
     Dates: start: 20090917, end: 20090922
  4. METFORMIN HCL [Suspect]
     Indication: POLYCYSTIC OVARIES
     Dosage: 1500MG DAILY PO
     Route: 048
     Dates: start: 20090917, end: 20090922

REACTIONS (1)
  - FUNGAL INFECTION [None]
